FAERS Safety Report 19098913 (Version 4)
Quarter: 2022Q3

REPORT INFORMATION
  Report Type: Spontaneous
  Country: US (occurrence: US)
  Receive Date: 20210406
  Receipt Date: 20220725
  Transmission Date: 20221027
  Serious: No
  Sender: FDA-Public Use
  Company Number: US-PFIZER INC-2021182310

PATIENT
  Age: 56 Year
  Sex: Female

DRUGS (2)
  1. XELJANZ XR [Suspect]
     Active Substance: TOFACITINIB CITRATE
     Indication: Arthritis
     Dosage: 11 MG
  2. XELJANZ XR [Suspect]
     Active Substance: TOFACITINIB CITRATE
     Indication: Systemic lupus erythematosus

REACTIONS (3)
  - Infection [Unknown]
  - COVID-19 [Unknown]
  - Tooth extraction [Unknown]
